FAERS Safety Report 6000199-X (Version None)
Quarter: 2008Q4

REPORT INFORMATION
  Report Type: 
  Country: None (occurrence: None)
  Receive Date: 20081215
  Receipt Date: 20081205
  Transmission Date: 20090506
  Serious: Yes (Death, Hospitalization)
  Sender: FDA-Public Use
  Company Number: BR-PFIZER INC-2008099610

PATIENT

DRUGS (7)
  1. IRINOTECAN HCL [Suspect]
     Indication: COLORECTAL CANCER METASTATIC
     Dosage: SINGLE EVERY TWO WEEKS
     Route: 042
     Dates: start: 20080918
  2. BLINDED *PLACEBO [Suspect]
     Indication: COLORECTAL CANCER METASTATIC
     Dosage: 37.5 MG, 1X/DAY
     Route: 048
     Dates: start: 20080918, end: 20081117
  3. BLINDED SUNITINIB MALATE [Suspect]
     Indication: COLORECTAL CANCER METASTATIC
     Dosage: 37.5 MG, 1X/DAY
     Route: 048
     Dates: start: 20080918, end: 20081117
  4. FLUOROURACIL [Suspect]
     Indication: COLORECTAL CANCER METASTATIC
     Dosage: 636 MG, EVERY TWO WEEKS
     Route: 042
     Dates: start: 20080918
  5. FLUOROURACIL [Suspect]
     Dosage: 3815 MG, INFUSION
     Route: 042
     Dates: start: 20080918
  6. FOLINIC ACID [Suspect]
     Indication: COLORECTAL CANCER METASTATIC
     Dosage: 318 MG, SINGLE EVERY TWO WEEKS
     Route: 042
     Dates: start: 20080918
  7. CAPTOPRIL [Concomitant]
     Route: 048
     Dates: start: 20050101

REACTIONS (2)
  - DIARRHOEA [None]
  - SEPSIS [None]
